FAERS Safety Report 9918170 (Version 2)
Quarter: 2014Q1

REPORT INFORMATION
  Report Type: Spontaneous
  Country: US (occurrence: US)
  Receive Date: 20140223
  Receipt Date: 20140223
  Transmission Date: 20141002
  Serious: Yes (Other)
  Sender: FDA-Public Use
  Company Number: US-GE HEALTHCARE MEDICAL DIAGNOSTICS-OSCN-PR-0906S-0323

PATIENT
  Age: 71 Year
  Sex: Female
  Weight: 82.73 kg

DRUGS (8)
  1. OMNISCAN [Suspect]
     Indication: RENAL MASS
     Dates: start: 19981015, end: 19981015
  2. GADOLINIUM (UNSPECIFIED) [Suspect]
     Indication: PRODUCT USED FOR UNKNOWN INDICATION
     Dates: start: 20030601, end: 20030601
  3. GADOLINIUM (UNSPECIFIED) [Suspect]
     Indication: PRODUCT USED FOR UNKNOWN INDICATION
     Dates: start: 20040301, end: 20040301
  4. GADOLINIUM (UNSPECIFIED) [Suspect]
     Indication: PRODUCT USED FOR UNKNOWN INDICATION
     Dates: start: 20060401, end: 20060401
  5. GADOLINIUM (UNSPECIFIED) [Suspect]
     Indication: PRODUCT USED FOR UNKNOWN INDICATION
     Dates: start: 20071101, end: 20071101
  6. MAGNEVIST [Suspect]
     Indication: CEREBROVASCULAR ACCIDENT
     Dates: start: 20030501, end: 20030501
  7. MAGNEVIST [Suspect]
     Indication: DIPLOPIA
     Dates: start: 20030616, end: 20030616
  8. MAGNEVIST [Suspect]
     Indication: BACK PAIN
     Dates: start: 20071106, end: 20071106

REACTIONS (1)
  - Nephrogenic systemic fibrosis [Not Recovered/Not Resolved]
